FAERS Safety Report 5046696-5 (Version None)
Quarter: 2006Q2

REPORT INFORMATION
  Report Type: 
  Country: None (occurrence: None)
  Receive Date: 20060601
  Receipt Date: 20060321
  Transmission Date: 20061013
  Serious: No
  Sender: FDA-Public Use
  Company Number: 2006PV010659

PATIENT
  Age: 39 Year
  Sex: Female

DRUGS (5)
  1. BYETTA [Suspect]
     Indication: DIABETES MELLITUS NON-INSULIN-DEPENDENT
     Dosage: 5 MCG; BID; SC
     Route: 058
     Dates: start: 20060319
  2. DIOVAN HCT [Concomitant]
  3. TARKA [Concomitant]
  4. ACTOS [Concomitant]
  5. FORTAMET [Concomitant]

REACTIONS (1)
  - SLUGGISHNESS [None]
